FAERS Safety Report 4344109-X (Version None)
Quarter: 2004Q2

REPORT INFORMATION
  Report Type: 
  Country: None (occurrence: None)
  Receive Date: 20040422
  Receipt Date: 20040126
  Transmission Date: 20050107
  Serious: No
  Sender: FDA-Public Use
  Company Number: US-GLAXOSMITHKLINE-A0495987A

PATIENT
  Age: 50 Year
  Sex: Male
  Weight: 68.2 kg

DRUGS (9)
  1. LEXIVA [Suspect]
     Indication: ACQUIRED IMMUNODEFICIENCY SYNDROME
     Dosage: 700MG TWICE PER DAY
     Route: 048
     Dates: start: 20031220, end: 20040123
  2. TENOFOVIR [Concomitant]
     Indication: ACQUIRED IMMUNODEFICIENCY SYNDROME
     Dosage: 300MG PER DAY
     Route: 048
     Dates: start: 20030731
  3. FUZEON [Concomitant]
     Indication: ACQUIRED IMMUNODEFICIENCY SYNDROME
     Route: 065
     Dates: start: 20030731
  4. DDI EC [Concomitant]
     Indication: ACQUIRED IMMUNODEFICIENCY SYNDROME
     Dosage: 250MG PER DAY
     Route: 065
     Dates: start: 20030731
  5. ACYCLOVIR [Concomitant]
     Indication: HERPES SIMPLEX
     Dosage: 800MG TWICE PER DAY
     Route: 065
  6. TRIMETHOPRIM + SULFAMETHOXAZOLE [Concomitant]
     Indication: PNEUMOCYSTIS CARINII PNEUMONIA
     Dosage: 160U PER DAY
     Route: 065
  7. KLONOPIN [Concomitant]
     Indication: SLEEP DISORDER
     Dosage: 2G AT NIGHT
     Route: 065
  8. ALTACE [Concomitant]
     Indication: HYPERTENSION
     Dosage: 2.5G PER DAY
     Route: 065
     Dates: start: 20030601
  9. DIFLUCAN [Concomitant]
     Indication: DRUG USE FOR UNKNOWN INDICATION
     Dosage: 100G PER DAY
     Route: 065

REACTIONS (3)
  - MALAISE [None]
  - PYREXIA [None]
  - RASH [None]
